FAERS Safety Report 20525001 (Version 2)
Quarter: 2022Q1

REPORT INFORMATION
  Report Type: Report from Study
  Country: US (occurrence: US)
  Receive Date: 20220228
  Receipt Date: 20220303
  Transmission Date: 20220423
  Serious: Yes (Life-Threatening, Hospitalization, Other)
  Sender: FDA-Public Use
  Company Number: US-BRISTOL-MYERS SQUIBB COMPANY-BMS-2022-024307

PATIENT
  Age: 54 Year
  Sex: Female
  Weight: 82.5 kg

DRUGS (64)
  1. BELATACEPT [Suspect]
     Active Substance: BELATACEPT
     Indication: Renal transplant
     Dosage: 476.5 MILLIGRAM
     Route: 042
     Dates: start: 20210819
  2. BELATACEPT [Suspect]
     Active Substance: BELATACEPT
     Dosage: 462.5 MILLIGRAM
     Route: 065
     Dates: start: 20220104
  3. BELATACEPT [Suspect]
     Active Substance: BELATACEPT
     Dosage: 462.5 MILLIGRAM
     Route: 065
     Dates: start: 20220126
  4. TOCILIZUMAB [Suspect]
     Active Substance: TOCILIZUMAB
     Indication: Renal transplant
     Dosage: UNK
     Route: 042
     Dates: start: 20210530
  5. TOCILIZUMAB [Suspect]
     Active Substance: TOCILIZUMAB
     Dosage: 162 MILLIGRAM, SINGLE
     Route: 042
     Dates: start: 20210611, end: 20210806
  6. LULIZUMAB PEGOL [Suspect]
     Active Substance: LULIZUMAB PEGOL
     Indication: Renal transplant
     Dosage: 25 MILLIGRAM
     Route: 058
     Dates: start: 20210529, end: 20210529
  7. LULIZUMAB PEGOL [Suspect]
     Active Substance: LULIZUMAB PEGOL
     Dosage: 12.5 MILLIGRAM
     Route: 058
     Dates: start: 20210604, end: 20210813
  8. METHYLPREDNISOLONE [Suspect]
     Active Substance: METHYLPREDNISOLONE
     Indication: Renal transplant
     Dosage: 500 MILLIGRAM, SINGLE
     Route: 042
     Dates: start: 20210528, end: 20210528
  9. METHYLPREDNISOLONE [Suspect]
     Active Substance: METHYLPREDNISOLONE
     Dosage: 250 MILLIGRAM, SINGLE
     Route: 042
     Dates: start: 20210529, end: 20210529
  10. METHYLPREDNISOLONE [Suspect]
     Active Substance: METHYLPREDNISOLONE
     Dosage: 125 MILLIGRAM, SINGLE
     Route: 042
     Dates: start: 20210530, end: 20210530
  11. MYCOPHENOLATE MOFETIL [Suspect]
     Active Substance: MYCOPHENOLATE MOFETIL
     Indication: Renal transplant
     Dosage: 1000 MILLIGRAM, BID
     Route: 065
     Dates: start: 20210528, end: 20210624
  12. MYCOPHENOLATE MOFETIL [Suspect]
     Active Substance: MYCOPHENOLATE MOFETIL
     Dosage: 500 MILLIGRAM, BID
     Route: 065
     Dates: start: 20210625, end: 20210625
  13. MYCOPHENOLATE MOFETIL [Suspect]
     Active Substance: MYCOPHENOLATE MOFETIL
     Dosage: 500 MILLIGRAM, BID
     Route: 065
     Dates: start: 20210731, end: 20210810
  14. MYCOPHENOLATE MOFETIL [Suspect]
     Active Substance: MYCOPHENOLATE MOFETIL
     Dosage: 750 MILLIGRAM, BID
     Route: 065
     Dates: start: 20210811, end: 20210813
  15. MYCOPHENOLATE MOFETIL [Suspect]
     Active Substance: MYCOPHENOLATE MOFETIL
     Dosage: 500 MILLIGRAM, BID
     Route: 065
     Dates: start: 20210814, end: 20210819
  16. MYCOPHENOLATE MOFETIL [Suspect]
     Active Substance: MYCOPHENOLATE MOFETIL
     Dosage: 250 MILLIGRAM, BID
     Route: 065
     Dates: start: 20210820, end: 20210820
  17. MYCOPHENOLATE MOFETIL [Suspect]
     Active Substance: MYCOPHENOLATE MOFETIL
     Dosage: 500 MILLIGRAM, QD
     Route: 065
     Dates: start: 20210821, end: 20210830
  18. MYCOPHENOLATE MOFETIL [Suspect]
     Active Substance: MYCOPHENOLATE MOFETIL
     Dosage: 250 MILLIGRAM, QD
     Route: 065
     Dates: start: 20210821, end: 20210830
  19. MYCOPHENOLATE MOFETIL [Suspect]
     Active Substance: MYCOPHENOLATE MOFETIL
     Dosage: 250 MILLIGRAM, BID
     Route: 065
     Dates: start: 20210831, end: 20210903
  20. MYCOPHENOLATE MOFETIL [Suspect]
     Active Substance: MYCOPHENOLATE MOFETIL
     Dosage: 250 MILLIGRAM, QD
     Route: 065
     Dates: start: 20210903, end: 20210908
  21. PREDNISONE [Suspect]
     Active Substance: PREDNISONE
     Indication: Renal transplant
     Dosage: 60 MILLIGRAM
     Route: 048
     Dates: start: 20210531, end: 20210531
  22. PREDNISONE [Suspect]
     Active Substance: PREDNISONE
     Dosage: 30 MILLIGRAM
     Route: 048
     Dates: start: 20210601, end: 20210604
  23. PREDNISONE [Suspect]
     Active Substance: PREDNISONE
     Dosage: 20 MILLIGRAM
     Route: 048
     Dates: start: 20210605, end: 20210614
  24. PREDNISONE [Suspect]
     Active Substance: PREDNISONE
     Dosage: 10 MILLIGRAM
     Route: 048
     Dates: start: 20210615, end: 20210621
  25. PREDNISONE [Suspect]
     Active Substance: PREDNISONE
     Dosage: 5 MILLIGRAM
     Route: 048
     Dates: start: 20210622, end: 20210903
  26. PREDNISONE [Suspect]
     Active Substance: PREDNISONE
     Dosage: 10 MILLIGRAM
     Route: 048
     Dates: start: 20210903
  27. PREDNISONE [Suspect]
     Active Substance: PREDNISONE
     Dosage: 5 MILLIGRAM
     Route: 065
     Dates: start: 20220104
  28. PREDNISONE [Suspect]
     Active Substance: PREDNISONE
     Dosage: 5 MILLIGRAM
     Route: 065
     Dates: start: 20220126
  29. THYMOCYTE IMMUNE GLOBULIN NOS [Suspect]
     Active Substance: THYMOCYTE IMMUNE GLOBULIN NOS
     Indication: Renal transplant
     Dosage: 1.5 MILLIGRAM/KILOGRAM, QD
     Route: 042
     Dates: start: 20210528, end: 20210531
  30. EVEROLIMUS [Suspect]
     Active Substance: EVEROLIMUS
     Indication: Renal transplant
     Dosage: 0.75 MILLIGRAM, BID
     Route: 065
     Dates: start: 20210611, end: 20210616
  31. EVEROLIMUS [Suspect]
     Active Substance: EVEROLIMUS
     Dosage: 1.5 MILLIGRAM, BID
     Route: 065
     Dates: start: 20210616, end: 20210621
  32. EVEROLIMUS [Suspect]
     Active Substance: EVEROLIMUS
     Dosage: 3 MILLIGRAM, BID
     Route: 065
     Dates: start: 20210621, end: 20210708
  33. EVEROLIMUS [Suspect]
     Active Substance: EVEROLIMUS
     Dosage: 2.25 MILLIGRAM, BID
     Route: 065
     Dates: start: 20210709, end: 20210716
  34. EVEROLIMUS [Suspect]
     Active Substance: EVEROLIMUS
     Dosage: 1.5 MILLIGRAM, BID
     Route: 065
     Dates: start: 20210717, end: 20210730
  35. LIPITOR [Concomitant]
     Active Substance: ATORVASTATIN CALCIUM
     Indication: Product used for unknown indication
     Dosage: UNK
     Route: 065
     Dates: start: 20210108
  36. MEPRON [Concomitant]
     Active Substance: ATOVAQUONE
     Indication: Product used for unknown indication
     Dosage: 1500 MILLIGRAM, QD
     Route: 048
     Dates: start: 20211018
  37. COREG [Concomitant]
     Active Substance: CARVEDILOL
     Indication: Product used for unknown indication
     Dosage: UNK
     Route: 065
     Dates: start: 20210529
  38. BASAGLAR [Concomitant]
     Active Substance: INSULIN GLARGINE
     Indication: Product used for unknown indication
     Dosage: UNK
     Route: 065
     Dates: start: 20201007
  39. HUMALOG [Concomitant]
     Active Substance: INSULIN LISPRO
     Indication: Product used for unknown indication
     Dosage: UNK
     Route: 065
     Dates: start: 20210608
  40. HUMALOG [Concomitant]
     Active Substance: INSULIN LISPRO
     Dosage: UNK
     Route: 065
     Dates: start: 20210624
  41. LANTUS [Concomitant]
     Active Substance: INSULIN GLARGINE
     Indication: Product used for unknown indication
     Dosage: UNK
     Route: 065
     Dates: start: 20201007
  42. TOUJEO [Concomitant]
     Active Substance: INSULIN GLARGINE
     Indication: Product used for unknown indication
     Dosage: UNK
     Route: 065
     Dates: start: 20201007
  43. VERAPAMIL [Concomitant]
     Active Substance: VERAPAMIL HYDROCHLORIDE
     Indication: Product used for unknown indication
     Dosage: UNK
     Route: 065
     Dates: start: 20210202
  44. HEPARIN [Concomitant]
     Active Substance: HEPARIN SODIUM
     Indication: Product used for unknown indication
     Dosage: UNK
     Route: 065
     Dates: start: 20210528
  45. VANCOMYCIN [Concomitant]
     Active Substance: VANCOMYCIN
     Indication: Product used for unknown indication
     Dosage: 125 MILLIGRAM, QID
     Route: 048
     Dates: start: 20211108
  46. VANCOMYCIN [Concomitant]
     Active Substance: VANCOMYCIN
     Indication: Infection
     Dosage: 125 MILLIGRAM, QID
     Route: 065
     Dates: start: 20220203
  47. SODIUM CHLORIDE [Concomitant]
     Active Substance: SODIUM CHLORIDE
     Indication: Immunosuppression
     Dosage: 100 MILLILITER
     Route: 042
     Dates: start: 20220104
  48. SODIUM CHLORIDE [Concomitant]
     Active Substance: SODIUM CHLORIDE
     Dosage: 100 MILLILITER
     Route: 042
     Dates: start: 20220126
  49. ENVARSUS XR [Concomitant]
     Active Substance: TACROLIMUS
     Indication: Immunosuppression
     Dosage: 3 MILLIGRAM, QD
     Route: 065
     Dates: start: 20220126, end: 20220201
  50. PROGRAF [Concomitant]
     Active Substance: TACROLIMUS
     Indication: Immunosuppression
     Dosage: 2 MILLIGRAM, BID
     Route: 065
     Dates: start: 20220201
  51. GRANIX [Concomitant]
     Active Substance: TBO-FILGRASTIM
     Indication: Neutropenia
     Dosage: 300 MCG/0.5 ML SYRINGE 300 MG
     Route: 065
     Dates: start: 20220109
  52. GRANIX [Concomitant]
     Active Substance: TBO-FILGRASTIM
     Dosage: 480 MCG/0.8 ML SYRINGE 480 MCG
     Route: 065
     Dates: start: 20220113
  53. GRANIX [Concomitant]
     Active Substance: TBO-FILGRASTIM
     Dosage: 480 MCG/0.8 ML SYRINGE 480 MCG
     Route: 065
     Dates: start: 20220203
  54. GRANIX [Concomitant]
     Active Substance: TBO-FILGRASTIM
     Dosage: 480 MCG/0.8 ML SYRINGE 480 MCG
     Route: 065
     Dates: start: 20220207, end: 20220208
  55. MAXIPIME [Concomitant]
     Active Substance: CEFEPIME HYDROCHLORIDE
     Indication: Infection
     Dosage: UNK
     Route: 065
     Dates: start: 20211220, end: 20211221
  56. MAXIPIME [Concomitant]
     Active Substance: CEFEPIME HYDROCHLORIDE
     Dosage: UNK
     Route: 065
     Dates: start: 20220130, end: 20220201
  57. MAXIPIME [Concomitant]
     Active Substance: CEFEPIME HYDROCHLORIDE
     Dosage: UNK
     Route: 065
     Dates: start: 20220207, end: 20220208
  58. KEFLEX [Concomitant]
     Active Substance: CEPHALEXIN
     Indication: Infection
     Dosage: 1000 MILLIGRAM
     Dates: start: 20211226, end: 20211229
  59. CEFTRIAXONE [Concomitant]
     Active Substance: CEFTRIAXONE
     Indication: Infection
     Dosage: UNK
     Route: 065
     Dates: start: 20220201, end: 20220202
  60. CEFUROXIME AXETIL [Concomitant]
     Active Substance: CEFUROXIME AXETIL
     Indication: Infection
     Dosage: 250 MILLIGRAM
     Route: 065
     Dates: start: 20220203, end: 20220207
  61. DIFLUCAN [Concomitant]
     Active Substance: FLUCONAZOLE
     Indication: Infection
     Dosage: UNK
     Route: 065
     Dates: start: 20220121, end: 20220126
  62. MYCAMINE [Concomitant]
     Active Substance: MICAFUNGIN SODIUM
     Indication: Infection
     Dosage: 200 MG IN SODIUM CHLORIDE 0.9% 100 ML
     Route: 065
     Dates: start: 20211229, end: 20220112
  63. ZOSYN [Concomitant]
     Active Substance: PIPERACILLIN SODIUM\TAZOBACTAM SODIUM
     Indication: Infection
     Dosage: 3.375 G/100 ML NACI
     Route: 042
     Dates: start: 20211219, end: 20211220
  64. ZOSYN [Concomitant]
     Active Substance: PIPERACILLIN SODIUM\TAZOBACTAM SODIUM
     Dosage: 3.375 G/100 ML NACI
     Route: 042
     Dates: start: 20211229, end: 20220113

REACTIONS (1)
  - Sepsis [Recovering/Resolving]

NARRATIVE: CASE EVENT DATE: 20220130
